FAERS Safety Report 22142674 (Version 1)
Quarter: 2023Q1

REPORT INFORMATION
  Report Type: Spontaneous
  Country: US (occurrence: US)
  Receive Date: 20230327
  Receipt Date: 20230327
  Transmission Date: 20230417
  Serious: Yes (Congenital Anomaly)
  Sender: FDA-Public Use
  Company Number: US-BIOGEN-2023BI01195123

PATIENT
  Age: 3 Month

DRUGS (1)
  1. TYSABRI [Suspect]
     Active Substance: NATALIZUMAB
     Indication: Maternal exposure timing unspecified
     Route: 050

REACTIONS (2)
  - Truncus arteriosus persistent [Unknown]
  - Foetal exposure during pregnancy [Recovered/Resolved]
